APPROVED DRUG PRODUCT: HALOPERIDOL
Active Ingredient: HALOPERIDOL
Strength: 2MG
Dosage Form/Route: TABLET;ORAL
Application: A071073 | Product #001
Applicant: PUREPAC PHARMACEUTICAL CO
Approved: Nov 3, 1986 | RLD: No | RS: No | Type: DISCN